FAERS Safety Report 6049105-2 (Version None)
Quarter: 2009Q1

REPORT INFORMATION
  Report Type: 
  Country: None (occurrence: None)
  Receive Date: 20090123
  Receipt Date: 20090115
  Transmission Date: 20090719
  Serious: Yes (Hospitalization)
  Sender: FDA-Public Use
  Company Number: FR-ASTRAZENECA-2009CG00194

PATIENT
  Age: 25 Year
  Sex: Male

DRUGS (5)
  1. DIPRIVAN [Suspect]
     Route: 042
     Dates: start: 20070101, end: 20070101
  2. AUGMENTIN '125' [Suspect]
     Dates: start: 20070101, end: 20070101
  3. SUFENTA PRESERVATIVE FREE [Suspect]
     Dates: start: 20070101, end: 20070101
  4. PROFENID [Suspect]
     Dates: start: 20070101, end: 20070101
  5. PRO-DAFALGAN [Suspect]
     Dates: start: 20070101, end: 20070101

REACTIONS (5)
  - ANAPHYLACTIC SHOCK [None]
  - CYANOSIS [None]
  - ERYTHEMA [None]
  - SHOCK [None]
  - TACHYCARDIA [None]
